FAERS Safety Report 9016703 (Version 2)
Quarter: 2013Q1

REPORT INFORMATION
  Report Type: Spontaneous
  Country: US (occurrence: US)
  Receive Date: 20130116
  Receipt Date: 20130214
  Transmission Date: 20140127
  Serious: No
  Sender: FDA-Public Use
  Company Number: US-009507513-1301USA003857

PATIENT
  Age: 70 Year
  Sex: Male
  Weight: 74.38 kg

DRUGS (2)
  1. CLARITIN [Suspect]
     Indication: RHINORRHOEA
     Dosage: 10 MG, QD
     Route: 048
     Dates: start: 20121217, end: 20121219
  2. CLARITIN [Suspect]
     Indication: NASOPHARYNGITIS

REACTIONS (4)
  - Insomnia [Unknown]
  - Bowel movement irregularity [Unknown]
  - Abdominal pain [Recovered/Resolved]
  - Rash [Recovered/Resolved]
